FAERS Safety Report 18579546 (Version 1)
Quarter: 2020Q4

REPORT INFORMATION
  Report Type: Spontaneous
  Country: TR (occurrence: TR)
  Receive Date: 20201204
  Receipt Date: 20201204
  Transmission Date: 20210114
  Serious: Yes (Other)
  Sender: FDA-Public Use
  Company Number: TR-LUPIN PHARMACEUTICALS INC.-2020-09703

PATIENT
  Age: 47 Year
  Sex: Female

DRUGS (4)
  1. ACETYLSALICYLIC ACID [Concomitant]
     Active Substance: ASPIRIN
     Indication: CORONARY ARTERY DISEASE
     Dosage: 100 MILLIGRAM, QD
     Route: 065
  2. LEVONORGESTREL. [Suspect]
     Active Substance: LEVONORGESTREL
     Indication: UTERINE HAEMORRHAGE
     Dosage: UNK
     Route: 015
  3. CLOPIDOGREL [Concomitant]
     Active Substance: CLOPIDOGREL BISULFATE
     Indication: CORONARY ARTERY DISEASE
     Dosage: 75 MILLIGRAM, QD
     Route: 065
  4. CEFTRIAXONE. [Concomitant]
     Active Substance: CEFTRIAXONE
     Indication: PRODUCT USED FOR UNKNOWN INDICATION
     Dosage: 1 GRAM, BID
     Route: 042

REACTIONS (1)
  - Drug ineffective [Unknown]
